FAERS Safety Report 16986976 (Version 1)
Quarter: 2019Q4

REPORT INFORMATION
  Report Type: Spontaneous
  Country: FR (occurrence: FR)
  Receive Date: 20191102
  Receipt Date: 20191102
  Transmission Date: 20200122
  Serious: Yes (Other)
  Sender: FDA-Public Use
  Company Number: FR-ROCHE-2456092

PATIENT
  Sex: Female

DRUGS (2)
  1. COBIMETINIB. [Suspect]
     Active Substance: COBIMETINIB
     Indication: MALIGNANT MELANOMA
     Route: 048
     Dates: start: 20150701
  2. VEMURAFENIB. [Suspect]
     Active Substance: VEMURAFENIB
     Indication: MALIGNANT MELANOMA
     Dosage: MOST RECENT DOSE WAS ON 15/FEB/2018.
     Route: 048
     Dates: start: 20150701

REACTIONS (4)
  - Asthenia [Not Recovered/Not Resolved]
  - Dermatitis exfoliative generalised [Recovered/Resolved]
  - Anaemia [Recovered/Resolved]
  - Pyrexia [Recovered/Resolved]

NARRATIVE: CASE EVENT DATE: 20150710
